FAERS Safety Report 14323664 (Version 1)
Quarter: 2017Q4

REPORT INFORMATION
  Report Type: Spontaneous
  Country: US (occurrence: US)
  Receive Date: 20171226
  Receipt Date: 20171226
  Transmission Date: 20180321
  Serious: Yes (Other)
  Sender: FDA-Public Use
  Company Number: US-ASTELLAS-2017US054733

PATIENT
  Age: 73 Year
  Sex: Male

DRUGS (2)
  1. PREDNISON [Interacting]
     Active Substance: PREDNISONE
     Indication: PRODUCT USED FOR UNKNOWN INDICATION
     Dosage: UNK, UNKNOWN FREQ.
     Route: 065
     Dates: start: 201712
  2. MYRBETRIQ [Suspect]
     Active Substance: MIRABEGRON
     Indication: HYPERTONIC BLADDER
     Route: 065
     Dates: start: 201712, end: 20171214

REACTIONS (5)
  - Intentional product misuse [Unknown]
  - Dry eye [Unknown]
  - Hypersensitivity [Unknown]
  - Dry mouth [Unknown]
  - Rash generalised [Unknown]

NARRATIVE: CASE EVENT DATE: 20171215
